FAERS Safety Report 5430881-4 (Version None)
Quarter: 2007Q3

REPORT INFORMATION
  Report Type: 
  Country: None (occurrence: None)
  Receive Date: 20070830
  Receipt Date: 20070105
  Transmission Date: 20080115
  Serious: No
  Sender: FDA-Public Use
  Company Number: A0634486A

PATIENT
  Age: 60 Year
  Sex: Female

DRUGS (4)
  1. WELLBUTRIN XL [Suspect]
     Indication: DEPRESSION
     Dosage: 150MG PER DAY
     Route: 048
     Dates: start: 20061001
  2. BUPROPION HCL [Suspect]
     Indication: DEPRESSION
     Route: 048
  3. KLONOPIN [Concomitant]
  4. DESERIL [Concomitant]

REACTIONS (2)
  - HYPERSOMNIA [None]
  - SOMNOLENCE [None]
